FAERS Safety Report 6754858-1 (Version None)
Quarter: 2010Q2

REPORT INFORMATION
  Report Type: 
  Country: None (occurrence: None)
  Receive Date: 20100603
  Receipt Date: 20100601
  Transmission Date: 20101027
  Serious: Yes (Other)
  Sender: FDA-Public Use
  Company Number: CA-MERCK-0806CAN00175

PATIENT
  Sex: Male

DRUGS (4)
  1. JANUVIA [Suspect]
     Route: 048
     Dates: start: 20080622, end: 20080625
  2. [THERAPY UNSPECIFIED] [Concomitant]
     Indication: HYPERTENSION
     Route: 065
  3. [THERAPY UNSPECIFIED] [Concomitant]
     Indication: BLOOD CHOLESTEROL
     Route: 065
  4. LORATADINE [Concomitant]
     Route: 065

REACTIONS (2)
  - DEAFNESS [None]
  - TINNITUS [None]
